FAERS Safety Report 17807169 (Version 1)
Quarter: 2020Q2

REPORT INFORMATION
  Report Type: Spontaneous
  Country: CA (occurrence: CA)
  Receive Date: 20200520
  Receipt Date: 20200520
  Transmission Date: 20200714
  Serious: Yes (Other)
  Sender: FDA-Public Use
  Company Number: CA-ROCHE-2601484

PATIENT
  Age: 58 Year
  Sex: Female
  Weight: 120 kg

DRUGS (21)
  1. ACETAMINOPHEN. [Concomitant]
     Active Substance: ACETAMINOPHEN
  2. LISINOPRIL. [Concomitant]
     Active Substance: LISINOPRIL
  3. VENLAFAXINE [Concomitant]
     Active Substance: VENLAFAXINE HYDROCHLORIDE
  4. ATORVASTATIN [Concomitant]
     Active Substance: ATORVASTATIN
  5. FOLIC ACID. [Concomitant]
     Active Substance: FOLIC ACID
  6. SULFASALAZINE. [Concomitant]
     Active Substance: SULFASALAZINE
  7. DIPHENHYDRAMINE HYDROCHLORIDE. [Concomitant]
     Active Substance: DIPHENHYDRAMINE HYDROCHLORIDE
  8. LASIX [Concomitant]
     Active Substance: FUROSEMIDE
  9. QUETIAPINE FUMARATE. [Concomitant]
     Active Substance: QUETIAPINE FUMARATE
  10. FUROSEMIDE. [Concomitant]
     Active Substance: FUROSEMIDE
  11. IBUPROFEN. [Concomitant]
     Active Substance: IBUPROFEN
  12. METHYLPREDNISOLONE. [Concomitant]
     Active Substance: METHYLPREDNISOLONE
  13. QUETIAPINE. [Concomitant]
     Active Substance: QUETIAPINE
  14. RITUXIMAB. [Suspect]
     Active Substance: RITUXIMAB
     Indication: RHEUMATOID ARTHRITIS
     Route: 042
  15. METHOTREXATE. [Suspect]
     Active Substance: METHOTREXATE
     Indication: RHEUMATOID ARTHRITIS
     Route: 065
  16. CLONAZEPAM. [Concomitant]
     Active Substance: CLONAZEPAM
     Route: 048
  17. FOSAMAX [Concomitant]
     Active Substance: ALENDRONATE SODIUM
  18. HYDROMORPHONE [Concomitant]
     Active Substance: HYDROMORPHONE
  19. NORTRIPTYLINE [Concomitant]
     Active Substance: NORTRIPTYLINE
  20. DICLOFENAC [Concomitant]
     Active Substance: DICLOFENAC
  21. HYDROCHLOROTHIAZIDE. [Concomitant]
     Active Substance: HYDROCHLOROTHIAZIDE

REACTIONS (7)
  - Tendon rupture [Not Recovered/Not Resolved]
  - Hepatic enzyme abnormal [Not Recovered/Not Resolved]
  - Psoriasis [Not Recovered/Not Resolved]
  - Fall [Unknown]
  - Weight increased [Not Recovered/Not Resolved]
  - Type 2 diabetes mellitus [Not Recovered/Not Resolved]
  - Rheumatoid arthritis [Not Recovered/Not Resolved]
